FAERS Safety Report 9460670 (Version 1)
Quarter: 2013Q3

REPORT INFORMATION
  Report Type: Spontaneous
  Country: FR (occurrence: None)
  Receive Date: 20130813
  Receipt Date: 20130813
  Transmission Date: 20140515
  Serious: Yes (Hospitalization)
  Sender: FDA-Public Use
  Company Number: DSM-2013-00731

PATIENT
  Age: 66 Year
  Sex: Male

DRUGS (3)
  1. ALTEIS [Suspect]
     Indication: HYPERTENSION
     Dosage: (20 MG, 1 IN 1 D)
     Route: 048
     Dates: start: 201001, end: 20130203
  2. AVODART (DUTASTERIDE0 (DUTASTERIDE) [Concomitant]
  3. XATRAL (ALFUZOSIN HYDROCHLORIDE) (ALFUZOSIN HYDROCHLORIDE) [Concomitant]

REACTIONS (13)
  - Enterocolitis [None]
  - Malabsorption [None]
  - Intestinal villi atrophy [None]
  - Crohn^s disease [None]
  - Malnutrition [None]
  - Weight decreased [None]
  - Anaemia [None]
  - Hypotension [None]
  - Carbohydrate antigen 19-9 increased [None]
  - Biopsy bone marrow abnormal [None]
  - Lymphopenia [None]
  - Enteritis [None]
  - Gastrointestinal infection [None]
